FAERS Safety Report 5889989-1 (Version None)
Quarter: 2008Q3

REPORT INFORMATION
  Report Type: 
  Country: None (occurrence: None)
  Receive Date: 20080919
  Receipt Date: 20080915
  Transmission Date: 20090109
  Serious: Yes (Death, Hospitalization)
  Sender: FDA-Public Use
  Company Number: US-PFIZER INC-2008011382

PATIENT
  Sex: Male
  Weight: 137.9 kg

DRUGS (12)
  1. SUTENT [Suspect]
     Indication: RENAL CELL CARCINOMA
     Route: 048
     Dates: start: 20071022, end: 20080120
  2. ATENOLOL [Concomitant]
     Route: 048
     Dates: start: 20040101
  3. ADVAIR DISKUS 100/50 [Concomitant]
     Route: 055
     Dates: start: 20060101
  4. CARDIZEM [Concomitant]
     Route: 048
     Dates: start: 20000101
  5. METFORMIN HCL [Concomitant]
     Route: 048
     Dates: start: 20070101
  6. CATAPRES [Concomitant]
     Route: 048
     Dates: start: 20040101
  7. ZOCOR [Concomitant]
     Route: 048
     Dates: start: 20060101
  8. LASIX [Concomitant]
     Route: 048
     Dates: start: 20040101
  9. K-DUR [Concomitant]
     Route: 048
     Dates: start: 20040101
  10. ZOLOFT [Concomitant]
     Route: 048
     Dates: start: 20060101
  11. COMMIT [Concomitant]
     Route: 048
     Dates: start: 20071001
  12. ALBUTEROL [Concomitant]
     Route: 055
     Dates: start: 20071128

REACTIONS (4)
  - EMBOLIC STROKE [None]
  - PNEUMONIA ASPIRATION [None]
  - RENAL FAILURE ACUTE [None]
  - REVERSIBLE POSTERIOR LEUKOENCEPHALOPATHY SYNDROME [None]
